FAERS Safety Report 8224942-4 (Version None)
Quarter: 2012Q1

REPORT INFORMATION
  Report Type: 
  Country: None (occurrence: None)
  Receive Date: 20120321
  Receipt Date: 20120315
  Transmission Date: 20120608
  Serious: Yes (Life-Threatening, Hospitalization, Disabling)
  Sender: FDA-Public Use
  Company Number: US-GILEAD-2012-0051201

PATIENT
  Sex: Female

DRUGS (4)
  1. REMODULIN [Concomitant]
  2. REVATIO [Concomitant]
  3. LETAIRIS [Suspect]
     Indication: PULMONARY HYPERTENSION
     Dosage: 5 MG, UNK
     Route: 048
     Dates: start: 20120127, end: 20120220
  4. LETAIRIS [Suspect]
     Indication: CREST SYNDROME

REACTIONS (2)
  - WEIGHT INCREASED [None]
  - RIGHT VENTRICULAR FAILURE [None]
